FAERS Safety Report 7052701-7 (Version None)
Quarter: 2010Q4

REPORT INFORMATION
  Report Type: 
  Country: None (occurrence: None)
  Receive Date: 20101012
  Receipt Date: 20101007
  Transmission Date: 20110411
  Serious: Yes (Other)
  Sender: FDA-Public Use
  Company Number: A0877818A

PATIENT
  Age: 80 Year
  Sex: Female

DRUGS (1)
  1. ASPIRIN [Suspect]
     Dosage: 325 MG / ORAL
     Route: 048

REACTIONS (3)
  - DEAFNESS [None]
  - PARAESTHESIA [None]
  - TINNITUS [None]
